FAERS Safety Report 6856629-4 (Version None)
Quarter: 2010Q3

REPORT INFORMATION
  Report Type: 
  Country: None (occurrence: None)
  Receive Date: 20100719
  Receipt Date: 20100708
  Transmission Date: 20110219
  Serious: Yes (Other)
  Sender: FDA-Public Use
  Company Number: AU-JNJCH-2010016317

PATIENT
  Age: 37 Year
  Sex: Female

DRUGS (1)
  1. NICORETTE PATCH STEP 1 15MG [Suspect]
     Indication: SMOKING CESSATION THERAPY
     Route: 062
     Dates: start: 20100702, end: 20100704

REACTIONS (1)
  - ANAPHYLACTIC REACTION [None]
